FAERS Safety Report 26058535 (Version 2)
Quarter: 2025Q4

REPORT INFORMATION
  Report Type: Report from Study
  Country: KR (occurrence: KR)
  Receive Date: 20251118
  Receipt Date: 20251223
  Transmission Date: 20260118
  Serious: Yes (Hospitalization)
  Sender: ROCHE
  Company Number: KR-ROCHE-10000437860

PATIENT
  Age: 49 Year
  Sex: Female
  Weight: 46.7 kg

DRUGS (13)
  1. PHESGO [Suspect]
     Active Substance: HYALURONIDASE-ZZXF\PERTUZUMAB\TRASTUZUMAB
     Indication: HER2 positive breast cancer
     Dosage: 1200/600 MG
     Route: 058
     Dates: start: 20251021, end: 20251021
  2. PHESGO [Suspect]
     Active Substance: HYALURONIDASE-ZZXF\PERTUZUMAB\TRASTUZUMAB
     Dosage: 600/600 MG
     Route: 058
     Dates: start: 20251111, end: 20251111
  3. DOCETAXEL [Suspect]
     Active Substance: DOCETAXEL
     Indication: HER2 positive breast cancer
     Route: 042
     Dates: start: 20251111, end: 20251111
  4. DOCETAXEL [Suspect]
     Active Substance: DOCETAXEL
     Route: 042
     Dates: start: 20251021, end: 20251021
  5. CARBOPLATIN [Suspect]
     Active Substance: CARBOPLATIN
     Indication: HER2 positive breast cancer
     Route: 042
     Dates: start: 20251111, end: 20251111
  6. CARBOPLATIN [Suspect]
     Active Substance: CARBOPLATIN
     Route: 042
     Dates: start: 20251021, end: 20251021
  7. Rolontis Prefille d Syringe Inj [Concomitant]
     Route: 058
  8. Rolontis Prefille d Syringe Inj [Concomitant]
     Route: 058
  9. Medilac-DS Enteric Coated C ap [Concomitant]
     Route: 048
     Dates: start: 20251027, end: 20251102
  10. Medilac-DS Enteric Coated C ap [Concomitant]
     Route: 048
     Dates: start: 20251112, end: 20251118
  11. Lanston LFDT Tab. 15mg (lan soprazole) [Concomitant]
     Route: 048
     Dates: start: 20251110
  12. MACPERAN tablets [Concomitant]
     Indication: Breast cancer
     Route: 048
     Dates: start: 20251110
  13. Yuhan Dexamethasone Tablet [Concomitant]
     Indication: Breast cancer
     Route: 048
     Dates: start: 20251110

REACTIONS (3)
  - Ileus [Recovered/Resolved]
  - Anal haemorrhage [Recovered/Resolved]
  - Post herpetic neuralgia [Recovering/Resolving]

NARRATIVE: CASE EVENT DATE: 20251025
